FAERS Safety Report 7399655-1 (Version None)
Quarter: 2011Q2

REPORT INFORMATION
  Report Type: 
  Country: None (occurrence: None)
  Receive Date: 20110407
  Receipt Date: 20100410
  Transmission Date: 20111010
  Serious: No
  Sender: FDA-Public Use
  Company Number: US-KINGPHARMUSA00001-K201000430

PATIENT
  Sex: Female
  Weight: 131.52 kg

DRUGS (4)
  1. SKELAXIN [Suspect]
     Dosage: 1200 MG, QD
     Route: 048
     Dates: start: 20100101
  2. CYCLOBENZAPRINE HYDROCHLORIDE [Concomitant]
     Dosage: UNK
  3. SKELAXIN [Suspect]
     Indication: BACK PAIN
     Dosage: 1200 MG, QD
     Route: 048
     Dates: start: 20020101, end: 20100301
  4. OXYBUTYNIN [Concomitant]
     Indication: BLADDER DISORDER
     Dosage: UNK

REACTIONS (3)
  - DRUG INEFFECTIVE [None]
  - SOMNOLENCE [None]
  - FEELING ABNORMAL [None]
